FAERS Safety Report 9054230 (Version 1)
Quarter: 2013Q1

REPORT INFORMATION
  Report Type: Spontaneous
  Country: US (occurrence: US)
  Receive Date: 20130208
  Receipt Date: 20130208
  Transmission Date: 20140127
  Serious: Yes (Death, Hospitalization, Other)
  Sender: FDA-Public Use
  Company Number: US-BAXTER-2013BAX004298

PATIENT
  Sex: Female

DRUGS (1)
  1. DIANEAL LOW CALCIUM [Suspect]
     Indication: PERITONEAL DIALYSIS
     Route: 033
     Dates: end: 20130128

REACTIONS (5)
  - Renal failure [Fatal]
  - Mental status changes [Unknown]
  - Cerebrovascular accident [Unknown]
  - Unresponsive to stimuli [Unknown]
  - Confusional state [Unknown]
